FAERS Safety Report 4388414-X (Version None)
Quarter: 2004Q3

REPORT INFORMATION
  Report Type: 
  Country: None (occurrence: None)
  Receive Date: 20040701
  Receipt Date: 20040130
  Transmission Date: 20050211
  Serious: Yes (Death)
  Sender: FDA-Public Use
  Company Number: GB-ROCHE-357754

PATIENT
  Age: 54 Year
  Sex: Male
  Weight: 172 kg

DRUGS (7)
  1. XENICAL [Suspect]
     Indication: OBESITY
     Route: 065
     Dates: start: 20020311
  2. UNKNOWN MEDICATION [Concomitant]
     Dosage: DRUG REPORTED AS LIPOSTATINS.
  3. OMEPRAZOLE [Concomitant]
     Dates: start: 20030510
  4. BECLOMETHASONE DIPROPIONATE [Concomitant]
     Dosage: REPORTED AS BECLOMETASONE NASAL SPRAY
     Dates: start: 20020424
  5. CETIRIZINE HCL [Concomitant]
     Dates: start: 20020424
  6. PRAVASTATIN [Concomitant]
     Dates: start: 20020503
  7. CO-DYDRAMOL [Concomitant]
     Dates: start: 20021101

REACTIONS (5)
  - ABDOMINAL PAIN [None]
  - ADENOCARCINOMA [None]
  - DIABETES MELLITUS [None]
  - METASTASES TO LIVER [None]
  - METASTATIC NEOPLASM [None]
